FAERS Safety Report 7854752-9 (Version None)
Quarter: 2011Q4

REPORT INFORMATION
  Report Type: 
  Country: None (occurrence: None)
  Receive Date: 20111026
  Receipt Date: 20110908
  Transmission Date: 20120403
  Serious: No
  Sender: FDA-Public Use
  Company Number: US-MUTUAL PHARMACEUTICAL COMPANY, INC.-CLCY20110122

PATIENT
  Sex: Female

DRUGS (3)
  1. HORMONE REPLACEMENT THERAPY [Concomitant]
     Indication: HORMONE THERAPY
     Route: 048
  2. MELOXICAM [Concomitant]
     Indication: ARTHRALGIA
     Route: 048
  3. COLCRYS [Suspect]
     Indication: CHONDROCALCINOSIS PYROPHOSPHATE
     Route: 048
     Dates: start: 20110721

REACTIONS (1)
  - NAIL DISCOLOURATION [None]
